FAERS Safety Report 7236332-1 (Version None)
Quarter: 2011Q1

REPORT INFORMATION
  Report Type: 
  Country: None (occurrence: None)
  Receive Date: 20110120
  Receipt Date: 20110114
  Transmission Date: 20110831
  Serious: Yes (Other)
  Sender: FDA-Public Use
  Company Number: US-PFIZER INC-2010102665

PATIENT
  Sex: Female
  Weight: 49.887 kg

DRUGS (4)
  1. ESTROPIPATE [Suspect]
     Dosage: UNK
     Dates: start: 19950101
  2. PREMARIN [Suspect]
     Dosage: LOW DOSE
     Dates: start: 19950101
  3. CARDIZEM [Concomitant]
  4. OGEN [Suspect]
     Indication: ARTIFICIAL MENOPAUSE
     Dosage: UNK
     Dates: end: 20100701

REACTIONS (10)
  - PERIPHERAL COLDNESS [None]
  - HEADACHE [None]
  - HOT FLUSH [None]
  - BLOOD CHOLESTEROL INCREASED [None]
  - BREAST TENDERNESS [None]
  - ACTIVITIES OF DAILY LIVING IMPAIRED [None]
  - FEELING ABNORMAL [None]
  - HYPOTHYROIDISM [None]
  - HYPERTENSION [None]
  - DRUG INEFFECTIVE [None]
